FAERS Safety Report 16631439 (Version 1)
Quarter: 2019Q3

REPORT INFORMATION
  Report Type: Spontaneous
  Country: DE (occurrence: DE)
  Receive Date: 20190725
  Receipt Date: 20190725
  Transmission Date: 20191004
  Serious: Yes (Other)
  Sender: FDA-Public Use
  Company Number: DE-TEVA-2019-DE-1083052

PATIENT
  Age: 25 Year
  Sex: Female
  Weight: 125 kg

DRUGS (1)
  1. METOPROLOL RATIOPHARM SUCCINAT 47,5 MG RETARDTABL. [Suspect]
     Active Substance: METOPROLOL SUCCINATE
     Dosage: 47.5MG
     Route: 048
     Dates: start: 20190702, end: 20190709

REACTIONS (3)
  - Suicidal ideation [Recovering/Resolving]
  - Intentional self-injury [Recovering/Resolving]
  - Mental disorder [Recovering/Resolving]

NARRATIVE: CASE EVENT DATE: 20190706
